FAERS Safety Report 5499618-7 (Version None)
Quarter: 2007Q4

REPORT INFORMATION
  Report Type: 
  Country: None (occurrence: None)
  Receive Date: 20071026
  Receipt Date: 20070911
  Transmission Date: 20080405
  Serious: Yes (Hospitalization)
  Sender: FDA-Public Use
  Company Number: US-SANOFI-SYNTHELABO-A03200703195

PATIENT
  Sex: Female
  Weight: 65.8 kg

DRUGS (4)
  1. BISOPROLOL FUMARATE [Interacting]
     Indication: HYPERTENSION
     Route: 048
  2. AMBIEN [Suspect]
     Indication: INSOMNIA
     Route: 048
     Dates: start: 20070101
  3. ALCOHOL [Interacting]
     Indication: DRUG USE FOR UNKNOWN INDICATION
     Dosage: UNK
     Route: 048
  4. DYAZIDE [Concomitant]
     Indication: DRUG USE FOR UNKNOWN INDICATION
     Dosage: 1 CAPSULE (37.5/25) DAILY
     Route: 048

REACTIONS (8)
  - ALCOHOL INTERACTION [None]
  - ASTHENIA [None]
  - BRADYCARDIA [None]
  - DISORIENTATION [None]
  - DRUG INTERACTION [None]
  - FATIGUE [None]
  - HYPOTENSION [None]
  - INCOHERENT [None]
